FAERS Safety Report 9780142 (Version 1)
Quarter: 2013Q4

REPORT INFORMATION
  Report Type: Spontaneous
  Country: DE (occurrence: DE)
  Receive Date: 20131223
  Receipt Date: 20131223
  Transmission Date: 20140711
  Serious: Yes (Other)
  Sender: FDA-Public Use
  Company Number: DE-TEVA-452175GER

PATIENT
  Sex: Female

DRUGS (1)
  1. METRONIDAZOL [Suspect]
     Indication: GARDNERELLA INFECTION
     Route: 048

REACTIONS (3)
  - Hypoaesthesia [Recovering/Resolving]
  - Movement disorder [Recovering/Resolving]
  - Muscle spasms [Recovering/Resolving]
